FAERS Safety Report 16440185 (Version 1)
Quarter: 2019Q2

REPORT INFORMATION
  Report Type: Spontaneous
  Country: US (occurrence: US)
  Receive Date: 20190617
  Receipt Date: 20190617
  Transmission Date: 20190711
  Serious: Yes (Other)
  Sender: FDA-Public Use
  Company Number: US-PFIZER INC-2019253203

PATIENT
  Age: 54 Year
  Sex: Female

DRUGS (9)
  1. PREVACID 24 HR [Suspect]
     Active Substance: LANSOPRAZOLE
     Dosage: UNK
  2. GLEEVEC [Suspect]
     Active Substance: IMATINIB MESYLATE
     Indication: CHRONIC MYELOID LEUKAEMIA
     Dosage: 0.5 DF, QD (HALF TAB QD)
     Route: 065
  3. METOPROLOL. [Concomitant]
     Active Substance: METOPROLOL
     Dosage: UNK
  4. NEXIUM 1-2-3 [Suspect]
     Active Substance: AMOXICILLIN\CLARITHROMYCIN\ESOMEPRAZOLE
     Dosage: UNK
  5. LORAZEPAM. [Concomitant]
     Active Substance: LORAZEPAM
     Dosage: UNK
  6. VITAMIN D3 [Concomitant]
     Active Substance: CHOLECALCIFEROL
     Dosage: UNK
  7. MAGNESIUM [Concomitant]
     Active Substance: MAGNESIUM
     Dosage: UNK
  8. PROTONIX [Suspect]
     Active Substance: PANTOPRAZOLE SODIUM
     Dosage: UNK
  9. VITAMIN B12 [Concomitant]
     Active Substance: CYANOCOBALAMIN
     Dosage: UNK

REACTIONS (6)
  - Constipation [Unknown]
  - Tendonitis [Unknown]
  - Nausea [Unknown]
  - Atrial fibrillation [Unknown]
  - Dyskinesia [Unknown]
  - Weight decreased [Unknown]
